FAERS Safety Report 5853824-8 (Version None)
Quarter: 2008Q3

REPORT INFORMATION
  Report Type: 
  Country: None (occurrence: None)
  Receive Date: 20080822
  Receipt Date: 20080820
  Transmission Date: 20090109
  Serious: Yes (Other)
  Sender: FDA-Public Use
  Company Number: PHHO2005DE02526

PATIENT
  Sex: Female
  Weight: 79 kg

DRUGS (1)
  1. MIACALCIN [Suspect]
     Indication: FOREARM FRACTURE
     Dosage: ONE PUFF DAILY
     Dates: start: 20040809, end: 20050209

REACTIONS (2)
  - EYE PAIN [None]
  - VISUAL ACUITY REDUCED [None]
